FAERS Safety Report 17761407 (Version 1)
Quarter: 2020Q2

REPORT INFORMATION
  Report Type: Report from Study
  Country: DE (occurrence: DE)
  Receive Date: 20200508
  Receipt Date: 20200508
  Transmission Date: 20200714
  Serious: Yes (Death, Life-Threatening, Hospitalization, Other)
  Sender: FDA-Public Use
  Company Number: DE-BRISTOL-MYERS SQUIBB COMPANY-BMS-2020-034668

PATIENT
  Age: 62 Year
  Sex: Female
  Weight: 80 kg

DRUGS (2)
  1. NIVOLUMAB [Suspect]
     Active Substance: NIVOLUMAB
     Indication: SOFT TISSUE SARCOMA
     Dosage: C4D1
     Route: 065
     Dates: start: 20200424, end: 20200424
  2. TRABECTEDIN [Suspect]
     Active Substance: TRABECTEDIN
     Indication: SOFT TISSUE SARCOMA
     Dosage: UNK
     Route: 065
     Dates: start: 20200402, end: 20200424

REACTIONS (5)
  - Sepsis [Fatal]
  - Acute kidney injury [Unknown]
  - Respiratory failure [Unknown]
  - Tumour lysis syndrome [Unknown]
  - Capillary leak syndrome [Unknown]

NARRATIVE: CASE EVENT DATE: 20200428
